FAERS Safety Report 18043670 (Version 1)
Quarter: 2020Q3

REPORT INFORMATION
  Report Type: Spontaneous
  Country: GE (occurrence: GE)
  Receive Date: 20200720
  Receipt Date: 20200720
  Transmission Date: 20201103
  Serious: Yes (Other)
  Sender: FDA-Public Use
  Company Number: GE-JNJFOC-20200715235

PATIENT
  Age: 65 Year
  Sex: Female

DRUGS (1)
  1. XARELTO [Suspect]
     Active Substance: RIVAROXABAN
     Indication: ATRIAL FIBRILLATION
     Dosage: 20 MG
     Route: 048

REACTIONS (1)
  - Atrial thrombosis [Recovered/Resolved]

NARRATIVE: CASE EVENT DATE: 201706
